FAERS Safety Report 5073583-9 (Version None)
Quarter: 2006Q2

REPORT INFORMATION
  Report Type: 
  Country: None (occurrence: None)
  Receive Date: 20060605
  Receipt Date: 20060524
  Transmission Date: 20061013
  Serious: Yes (Other)
  Sender: FDA-Public Use
  Company Number: 200610198

PATIENT

DRUGS (1)
  1. RHOPHYLAC [Suspect]
     Dates: start: 20060216, end: 20060216

REACTIONS (6)
  - BLOOD BILIRUBIN INCREASED [None]
  - COOMBS DIRECT TEST POSITIVE [None]
  - DRUG EXPOSURE DURING PREGNANCY [None]
  - HAEMATOCRIT DECREASED [None]
  - NEONATAL DISORDER [None]
  - RHESUS ANTIBODIES POSITIVE [None]
